FAERS Safety Report 16596067 (Version 2)
Quarter: 2019Q3

REPORT INFORMATION
  Report Type: Spontaneous
  Country: IT (occurrence: IT)
  Receive Date: 20190719
  Receipt Date: 20190926
  Transmission Date: 20191004
  Serious: Yes (Life-Threatening, Hospitalization, Other)
  Sender: FDA-Public Use
  Company Number: IT-AUROBINDO-AUR-APL-2019-029148

PATIENT
  Age: 12 Year
  Sex: Female

DRUGS (15)
  1. COLCHICINE. [Interacting]
     Active Substance: COLCHICINE
     Indication: CAPILLARY LEAK SYNDROME
     Dosage: 10 MICROGRAM/KILOGRAM, DAILY
     Route: 065
  2. METHYLPREDNISOLONE. [Concomitant]
     Active Substance: METHYLPREDNISOLONE
     Dosage: 10 MILLIGRAM/KILOGRAM, EVERY OTHER DAY (DAY 347)
     Route: 065
  3. AMIKACIN SULFATE. [Suspect]
     Active Substance: AMIKACIN SULFATE
     Indication: PRODUCT USED FOR UNKNOWN INDICATION
     Dosage: UNK
     Route: 065
  4. CICLOSPORIN [Concomitant]
     Active Substance: CYCLOSPORINE
     Indication: IMMUNOSUPPRESSANT DRUG THERAPY
     Dosage: UNK
     Route: 065
  5. ACICLOVIR [Suspect]
     Active Substance: ACYCLOVIR
     Indication: PRODUCT USED FOR UNKNOWN INDICATION
     Dosage: UNK
     Route: 065
  6. COLCHICINE. [Interacting]
     Active Substance: COLCHICINE
     Dosage: 0.5 MILLIGRAM, ONCE A DAY, 1D
     Route: 065
  7. CICLOSPORIN [Concomitant]
     Active Substance: CYCLOSPORINE
     Indication: CAPILLARY LEAK SYNDROME
  8. VANCOMYCIN [Suspect]
     Active Substance: VANCOMYCIN
     Indication: PRODUCT USED FOR UNKNOWN INDICATION
     Dosage: UNK
     Route: 065
  9. PREDNISONE. [Concomitant]
     Active Substance: PREDNISONE
     Indication: IMMUNOSUPPRESSANT DRUG THERAPY
     Dosage: UNK, PREDNISONE TAPERING ON DAYS 44 OF TRANSPLANT
     Route: 065
  10. METHYLPREDNISOLONE. [Concomitant]
     Active Substance: METHYLPREDNISOLONE
     Indication: ACUTE KIDNEY INJURY
     Dosage: UNK (2?5 MG/KG PER DOSE)
     Route: 042
  11. ALBUMIN HUMAN [Concomitant]
     Active Substance: ALBUMIN HUMAN
     Indication: HYPOALBUMINAEMIA
     Dosage: DAILY (1?2 G/KG PER DAY)
     Route: 065
  12. MYCOPHENOLATE [Interacting]
     Active Substance: MYCOPHENOLIC ACID
     Indication: ACUTE KIDNEY INJURY
     Dosage: 600 MILLIGRAM/SQ. METER (DAY 347)
     Route: 065
  13. COLCHICINE. [Interacting]
     Active Substance: COLCHICINE
     Dosage: 0.13 MILLIGRAM, ONCE A DAY (0.125 MG, 1D)
     Route: 065
  14. COLCHICINE. [Interacting]
     Active Substance: COLCHICINE
     Dosage: 1 MILLIGRAM, ONCE A DAY
     Route: 065
  15. PREDNISONE. [Concomitant]
     Active Substance: PREDNISONE
     Indication: CAPILLARY LEAK SYNDROME
     Dosage: UNK
     Route: 065

REACTIONS (6)
  - Drug interaction [Recovered/Resolved]
  - Leukopenia [Recovered/Resolved]
  - Nephropathy toxic [Recovered/Resolved]
  - Capillary leak syndrome [Recovered/Resolved]
  - Acute kidney injury [Recovered/Resolved]
  - Renal impairment [Recovered/Resolved]
